FAERS Safety Report 10625170 (Version 2)
Quarter: 2015Q1

REPORT INFORMATION
  Report Type: Spontaneous
  Country: US (occurrence: None)
  Receive Date: 20141121
  Receipt Date: 20150220
  Transmission Date: 20150720
  Serious: Yes (Other)
  Sender: FDA-Public Use
  Company Number: 1000071676

PATIENT
  Age: 74 Year
  Sex: Female

DRUGS (6)
  1. AZOR (AMLODIPINE, OLMESARTAN MEDOXOMIL) (AMLODIPINE, OLMESARTAN MEDOXOMIL) [Concomitant]
  2. NEXIUM [Concomitant]
     Active Substance: ESOMEPRAZOLE MAGNESIUM
  3. VYTORIN (EZETIMIBE, SIMVASTATIN) (EZETIMIBE, SIMVASTATIN) [Concomitant]
  4. FETZIMA [Suspect]
     Active Substance: LEVOMILNACIPRAN HYDROCHLORIDE
     Indication: DEPRESSION
     Route: 048
     Dates: start: 201410, end: 201411
  5. FETZIMA [Suspect]
     Active Substance: LEVOMILNACIPRAN HYDROCHLORIDE
     Indication: DEPRESSION
     Route: 048
     Dates: start: 201410, end: 201410
  6. EFFEXOR [Suspect]
     Active Substance: VENLAFAXINE HYDROCHLORIDE
     Indication: DEPRESSION
     Route: 048
     Dates: start: 2014, end: 201410

REACTIONS (5)
  - Heart rate increased [None]
  - Abdominal discomfort [None]
  - Hyperhidrosis [None]
  - Blood pressure increased [None]
  - Headache [None]

NARRATIVE: CASE EVENT DATE: 201410
